FAERS Safety Report 24637967 (Version 2)
Quarter: 2024Q4

REPORT INFORMATION
  Report Type: Spontaneous
  Country: DE (occurrence: DE)
  Receive Date: 20241119
  Receipt Date: 20241203
  Transmission Date: 20250115
  Serious: Yes (Other)
  Sender: EXELIXIS
  Company Number: DE-BRISTOL-MYERS SQUIBB COMPANY-2024-177236

PATIENT
  Age: 62 Year

DRUGS (4)
  1. CABOMETYX [Suspect]
     Active Substance: CABOZANTINIB S-MALATE
     Indication: Metastases to bone
     Dosage: UNK
     Route: 065
     Dates: start: 202305
  2. CABOMETYX [Suspect]
     Active Substance: CABOZANTINIB S-MALATE
     Indication: Metastatic renal cell carcinoma
  3. NIVOLUMAB [Suspect]
     Active Substance: NIVOLUMAB
     Indication: Metastases to bone
     Dosage: UNK
     Route: 065
     Dates: start: 202305, end: 202306
  4. NIVOLUMAB [Suspect]
     Active Substance: NIVOLUMAB
     Indication: Metastatic renal cell carcinoma

REACTIONS (4)
  - Sepsis [Unknown]
  - Mucous membrane pemphigoid [Unknown]
  - Lymphadenopathy [Unknown]
  - Gingivitis [Unknown]

NARRATIVE: CASE EVENT DATE: 20230601
